FAERS Safety Report 12170275 (Version 4)
Quarter: 2016Q2

REPORT INFORMATION
  Report Type: Report from Study
  Country: RS (occurrence: RS)
  Receive Date: 20160311
  Receipt Date: 20160621
  Transmission Date: 20160815
  Serious: Yes (Death)
  Sender: FDA-Public Use
  Company Number: RS-ROCHE-1722863

PATIENT
  Age: 67 Year
  Sex: Female
  Weight: 72 kg

DRUGS (9)
  1. OXALIPLATIN. [Suspect]
     Active Substance: OXALIPLATIN
     Indication: COLORECTAL CANCER METASTATIC
     Dosage: ON 03/MAR/2016, THE PATIENT RECEIVED THE LAST DOSE OF OXALIPLATIN PRIOR TO THE EVENT. (14:55)
     Route: 042
     Dates: start: 20151224
  2. FLUOROURACIL. [Suspect]
     Active Substance: FLUOROURACIL
     Indication: COLORECTAL CANCER METASTATIC
     Dosage: ON 03/MAR/2016, THE PATIENT RECEIVED THE LAST DOSE OF OXALIPLATIN PRIOR TO THE EVENT. (14:55)
     Route: 042
     Dates: start: 20151224
  3. FOLINIC ACID [Suspect]
     Active Substance: LEUCOVORIN
     Indication: COLORECTAL CANCER METASTATIC
     Dosage: ON 03/MAR/2016, THE PATIENT RECEIVED THE LAST DOSE OF OXALIPLATIN PRIOR TO THE EVENT. (14:55)
     Route: 042
     Dates: start: 20151224
  4. BISOPROLOL [Concomitant]
     Active Substance: BISOPROLOL
     Route: 065
     Dates: end: 20160304
  5. METOKLOPRAMID [Concomitant]
     Route: 065
     Dates: start: 20151224, end: 20160304
  6. AMLODIPIN [Concomitant]
     Active Substance: AMLODIPINE BESYLATE
     Route: 065
     Dates: end: 20160304
  7. ONDASETRON [Concomitant]
     Active Substance: ONDANSETRON
     Route: 065
     Dates: start: 20151224, end: 20160304
  8. BEVACIZUMAB [Suspect]
     Active Substance: BEVACIZUMAB
     Indication: COLORECTAL CANCER METASTATIC
     Dosage: ON 02/MAR/2016, THE PATIENT RECEIVED THE LAST DOSE (360 MG) OF BEVACIZUMAB PRIOR TO THE EVENT.
     Route: 042
     Dates: start: 20151224
  9. DEXAMETHASON [Concomitant]
     Active Substance: DEXAMETHASONE
     Route: 065
     Dates: start: 20151224, end: 20160304

REACTIONS (1)
  - Death [Fatal]

NARRATIVE: CASE EVENT DATE: 20160304
